FAERS Safety Report 12570377 (Version 4)
Quarter: 2016Q3

REPORT INFORMATION
  Report Type: Report from Study
  Country: CA (occurrence: CA)
  Receive Date: 20160719
  Receipt Date: 20160826
  Transmission Date: 20161109
  Serious: Yes (Hospitalization, Other)
  Sender: FDA-Public Use
  Company Number: CA-ABBVIE-16P-028-1655768-00

PATIENT
  Age: 72 Year
  Sex: Male

DRUGS (7)
  1. DUODOPA [Suspect]
     Active Substance: CARBIDOPA\LEVODOPA
     Indication: PARKINSON^S DISEASE
     Dosage: CD 20MG/ML
     Route: 050
     Dates: start: 20160609, end: 20160614
  2. TAMOXIFEN [Concomitant]
     Active Substance: TAMOXIFEN
     Indication: BREAST CANCER
  3. BENADRYL [Suspect]
     Active Substance: DIPHENHYDRAMINE HYDROCHLORIDE
     Indication: RASH
     Route: 065
     Dates: start: 20160614
  4. SINEMET [Concomitant]
     Active Substance: CARBIDOPA\LEVODOPA
     Indication: PRODUCT USED FOR UNKNOWN INDICATION
     Dosage: 100/25 MG 2 + ? TABS
     Route: 048
     Dates: start: 20160614, end: 20160711
  5. DUODOPA [Suspect]
     Active Substance: CARBIDOPA\LEVODOPA
     Route: 050
     Dates: start: 20160714, end: 20160716
  6. AMANTADINE [Concomitant]
     Active Substance: AMANTADINE
     Indication: PRODUCT USED FOR UNKNOWN INDICATION
  7. DUODOPA [Suspect]
     Active Substance: CARBIDOPA\LEVODOPA
     Route: 050
     Dates: start: 2016

REACTIONS (12)
  - Aggression [Unknown]
  - Headache [Not Recovered/Not Resolved]
  - Hypersomnia [Not Recovered/Not Resolved]
  - Rash erythematous [Recovering/Resolving]
  - Feeling abnormal [Not Recovered/Not Resolved]
  - Neck pain [Not Recovered/Not Resolved]
  - Paranoia [Unknown]
  - Fall [Unknown]
  - Somnolence [Not Recovered/Not Resolved]
  - Drug dose omission [Unknown]
  - Mobility decreased [Not Recovered/Not Resolved]
  - Back pain [Not Recovered/Not Resolved]

NARRATIVE: CASE EVENT DATE: 2016
